FAERS Safety Report 7145312-6 (Version None)
Quarter: 2010Q4

REPORT INFORMATION
  Report Type: 
  Country: None (occurrence: None)
  Receive Date: 20101208
  Receipt Date: 20101125
  Transmission Date: 20110411
  Serious: Yes (Hospitalization)
  Sender: FDA-Public Use
  Company Number: FR-SANOFI-AVENTIS-2010SA071540

PATIENT
  Age: 49 Year
  Sex: Male

DRUGS (4)
  1. KARDEGIC [Suspect]
     Route: 048
     Dates: end: 20100312
  2. PROFENID [Suspect]
     Indication: FRACTURED SACRUM
     Route: 042
     Dates: start: 20100224, end: 20100311
  3. PROFENID [Suspect]
     Route: 042
     Dates: start: 20100224, end: 20100311
  4. PLAVIX [Suspect]
     Route: 048
     Dates: end: 20100312

REACTIONS (2)
  - ANAEMIA [None]
  - DUODENAL ULCER [None]
